FAERS Safety Report 23334465 (Version 3)
Quarter: 2024Q2

REPORT INFORMATION
  Report Type: Report from Study
  Country: EG (occurrence: EG)
  Receive Date: 20231224
  Receipt Date: 20240421
  Transmission Date: 20240716
  Serious: Yes (Death, Hospitalization)
  Sender: FDA-Public Use
  Company Number: EG-JNJFOC-20231247835

PATIENT
  Age: 21 Year
  Sex: Male

DRUGS (1)
  1. STELARA [Suspect]
     Active Substance: USTEKINUMAB
     Indication: Crohn^s disease
     Route: 040
     Dates: start: 20231206

REACTIONS (3)
  - Death [Fatal]
  - Blood glucose decreased [Unknown]
  - Constipation [Unknown]

NARRATIVE: CASE EVENT DATE: 20231212
